FAERS Safety Report 9177840 (Version 1)
Quarter: 2013Q1

REPORT INFORMATION
  Report Type: Report from Study
  Country: IT (occurrence: IT)
  Receive Date: 20130321
  Receipt Date: 20130321
  Transmission Date: 20140127
  Serious: Yes (Hospitalization, Other)
  Sender: FDA-Public Use
  Company Number: PHHO2010IT09504

PATIENT
  Sex: 0

DRUGS (14)
  1. SOM230 [Suspect]
     Indication: PITUITARY-DEPENDENT CUSHING^S SYNDROME
     Dosage: 0.6 MG, UNK
     Dates: start: 20101220, end: 20101227
  2. SOM230 [Suspect]
     Dosage: 1.2 MG, UNK
     Dates: start: 20101228, end: 20110119
  3. SOM230 [Suspect]
     Dosage: 1.8 MG, UNK
     Dates: start: 20110120, end: 20110310
  4. SOM230 [Suspect]
     Dosage: 2.4 MG, UNK
     Dates: start: 20110311, end: 20110615
  5. SOM230 [Suspect]
     Dosage: 1.8 MG, UNK
     Dates: start: 20110616
  6. L-THYROXINE [Concomitant]
     Indication: HYPOTHYROIDISM
     Dosage: 75 MCG/DAY
     Dates: start: 2000
  7. TERIPARATIDE [Concomitant]
     Indication: OSTEOPOROSIS
     Dosage: 20 MCG PER DAY
     Dates: start: 201004
  8. TESTOSTERONE [Concomitant]
     Indication: HYPOGONADISM
     Dosage: UNK
  9. CABERGOLINE [Concomitant]
     Dosage: 35 MG/WEEK
     Dates: start: 201004, end: 20110311
  10. CABERGOLINE [Concomitant]
     Dosage: 2.5 MG/WEEK
     Dates: start: 201103, end: 20110618
  11. CALCIUM CARBONATE [Concomitant]
     Indication: OSTEOPOROSIS
     Dosage: 600 MG, QD
     Dates: start: 2008
  12. ACETYLSALICYLIC ACID [Concomitant]
     Dosage: UNK
     Dates: start: 2009
  13. FUROSEMIDE [Concomitant]
     Indication: HYPERTENSION
     Dosage: 25 MG, QD
     Dates: start: 20101228
  14. SPIRONOLACTONE [Concomitant]
     Indication: HYPERTENSION
     Dosage: UNK
     Dates: start: 2006

REACTIONS (2)
  - Diabetes mellitus [Not Recovered/Not Resolved]
  - Syncope [Recovered/Resolved]
